FAERS Safety Report 8456510-3 (Version None)
Quarter: 2012Q2

REPORT INFORMATION
  Report Type: 
  Country: None (occurrence: None)
  Receive Date: 20120621
  Receipt Date: 20120613
  Transmission Date: 20120825
  Serious: Yes (Other)
  Sender: FDA-Public Use
  Company Number: US-US-EMD SERONO, INC.-7140344

PATIENT
  Sex: Male

DRUGS (5)
  1. ASCORBIC ACID [Concomitant]
     Indication: ROUTINE HEALTH MAINTENANCE
  2. UNSPECIFIED BLOOD THINNER [Concomitant]
     Indication: PROPHYLAXIS
  3. REBIF [Suspect]
     Indication: MULTIPLE SCLEROSIS
     Route: 058
     Dates: start: 20090731
  4. POTASSIUM ACETATE [Concomitant]
     Indication: ROUTINE HEALTH MAINTENANCE
  5. VITAMIN D [Concomitant]
     Indication: ROUTINE HEALTH MAINTENANCE

REACTIONS (2)
  - ABDOMINAL HERNIA [None]
  - INJECTION SITE ERYTHEMA [None]
